FAERS Safety Report 11237782 (Version 1)
Quarter: 2015Q3

REPORT INFORMATION
  Report Type: Spontaneous
  Country: PE (occurrence: PE)
  Receive Date: 20150703
  Receipt Date: 20150703
  Transmission Date: 20151125
  Serious: Yes (Hospitalization)
  Sender: FDA-Public Use
  Company Number: PE-009507513-1507PER001368

PATIENT
  Age: 65 Year
  Sex: Female

DRUGS (1)
  1. JANUMET [Suspect]
     Active Substance: METFORMIN HYDROCHLORIDE\SITAGLIPTIN PHOSPHATE
     Dosage: TABLET AT 50MG/1000MG, BID
     Route: 048
     Dates: start: 20150128, end: 201506

REACTIONS (2)
  - Dengue fever [Unknown]
  - Renal disorder [Unknown]

NARRATIVE: CASE EVENT DATE: 201506
